FAERS Safety Report 13562072 (Version 3)
Quarter: 2017Q2

REPORT INFORMATION
  Report Type: Spontaneous
  Country: ZA (occurrence: ZA)
  Receive Date: 20170519
  Receipt Date: 20170607
  Transmission Date: 20170830
  Serious: Yes (Hospitalization, Other)
  Sender: FDA-Public Use
  Company Number: ZA-ROCHE-1935515

PATIENT
  Age: 66 Year
  Sex: Female
  Weight: 47.9 kg

DRUGS (3)
  1. TYKERB [Concomitant]
     Active Substance: LAPATINIB DITOSYLATE
     Route: 048
  2. XELODA [Suspect]
     Active Substance: CAPECITABINE
     Indication: PRODUCT USED FOR UNKNOWN INDICATION
     Route: 065
  3. BONDRONAT [Concomitant]
     Active Substance: IBANDRONIC ACID
     Route: 042

REACTIONS (3)
  - Cystitis [Recovered/Resolved]
  - Skin reaction [Unknown]
  - Vulvovaginal inflammation [Recovered/Resolved]

NARRATIVE: CASE EVENT DATE: 20170502
